FAERS Safety Report 15706465 (Version 1)
Quarter: 2018Q4

REPORT INFORMATION
  Report Type: Report from Study
  Country: US (occurrence: US)
  Receive Date: 20181210
  Receipt Date: 20181210
  Transmission Date: 20190205
  Serious: Yes (Other)
  Sender: FDA-Public Use
  Company Number: US-EISAI MEDICAL RESEARCH-EC-2018-044377

PATIENT
  Sex: Female
  Weight: 86.1 kg

DRUGS (3)
  1. LENVIMA [Suspect]
     Active Substance: LENVATINIB
     Route: 048
     Dates: start: 2018, end: 2018
  2. LISINOPRIL. [Concomitant]
     Active Substance: LISINOPRIL
  3. LENVIMA [Suspect]
     Active Substance: LENVATINIB
     Indication: THYROID CANCER
     Route: 048
     Dates: start: 20180815, end: 20180825

REACTIONS (12)
  - Fatigue [Recovering/Resolving]
  - Cerebrovascular accident [Unknown]
  - Headache [Unknown]
  - Decreased appetite [Unknown]
  - Oropharyngeal pain [Recovering/Resolving]
  - Pain [Unknown]
  - Dyspnoea [Unknown]
  - Insomnia [Unknown]
  - Blood pressure increased [Unknown]
  - Pharyngeal oedema [Recovering/Resolving]
  - Malaise [Recovering/Resolving]
  - Somnolence [Recovering/Resolving]

NARRATIVE: CASE EVENT DATE: 2018
